FAERS Safety Report 7055002-6 (Version None)
Quarter: 2010Q4

REPORT INFORMATION
  Report Type: 
  Country: None (occurrence: None)
  Receive Date: 20101021
  Receipt Date: 20101012
  Transmission Date: 20110411
  Serious: Yes (Hospitalization)
  Sender: FDA-Public Use
  Company Number: KR-JNJFOC-20101004067

PATIENT
  Age: 89 Year
  Sex: Female

DRUGS (8)
  1. INVEGA [Suspect]
     Indication: SCHIZOPHRENIA
     Route: 048
  2. INVEGA [Suspect]
     Route: 048
  3. INVEGA [Suspect]
     Route: 048
  4. INVEGA [Suspect]
     Route: 048
  5. ZOLPIDEM TARTRATE [Concomitant]
     Indication: INSOMNIA
  6. SEROQUEL [Concomitant]
     Indication: SCHIZOPHRENIA
  7. ATIVAN [Concomitant]
     Indication: SEDATIVE THERAPY
  8. MEMANTINE HCL [Concomitant]
     Indication: DEMENTIA

REACTIONS (4)
  - ABNORMAL BEHAVIOUR [None]
  - INAPPROPRIATE SCHEDULE OF DRUG ADMINISTRATION [None]
  - INSOMNIA [None]
  - OEDEMA PERIPHERAL [None]
